FAERS Safety Report 4993094-6 (Version None)
Quarter: 2006Q1

REPORT INFORMATION
  Report Type: 
  Country: None (occurrence: None)
  Receive Date: 20060313
  Receipt Date: 20051227
  Transmission Date: 20060701
  Serious: No
  Sender: FDA-Public Use
  Company Number: 2005-BP-21225BP

PATIENT
  Age: 76 Year
  Sex: Male

DRUGS (12)
  1. SPIRIVA [Suspect]
     Indication: CHRONIC OBSTRUCTIVE PULMONARY DISEASE
     Dosage: 18 MCG (18 MCG,1 IN 1 D),IH
     Dates: start: 20051201
  2. SPIRIVA [Suspect]
     Indication: DYSPNOEA EXERTIONAL
     Dosage: 18 MCG (18 MCG,1 IN 1 D),IH
     Dates: start: 20051201
  3. MS CONTIN [Concomitant]
  4. LACTULOSE [Concomitant]
  5. LASIX [Concomitant]
  6. ASPIRIN [Concomitant]
  7. NEURONTIN [Concomitant]
  8. FLECAINIDE ACETATE [Concomitant]
  9. POTASSIUM CHLORIDE [Concomitant]
  10. PLAVIX [Concomitant]
  11. BENICAR [Concomitant]
  12. OMEPRAZOLE [Concomitant]

REACTIONS (2)
  - DYSPNOEA [None]
  - THERAPEUTIC REACTION TIME DECREASED [None]
